FAERS Safety Report 10161358 (Version 1)
Quarter: 2014Q2

REPORT INFORMATION
  Report Type: Spontaneous
  Country: CH (occurrence: CH)
  Receive Date: 20140509
  Receipt Date: 20140509
  Transmission Date: 20141212
  Serious: Yes (Death)
  Sender: FDA-Public Use
  Company Number: CH-ROCHE-1394515

PATIENT
  Age: 74 Year
  Sex: Male

DRUGS (9)
  1. RIVOTRIL [Suspect]
     Indication: EPILEPSY
     Route: 058
     Dates: start: 20131116, end: 20131123
  2. CLEXANE [Suspect]
     Indication: THROMBOSIS PROPHYLAXIS
     Route: 058
     Dates: start: 20131123
  3. ASPIRIN [Concomitant]
     Indication: ATRIAL TACHYCARDIA
     Route: 048
     Dates: start: 2000, end: 20131126
  4. ATORVASTATIN [Concomitant]
     Indication: DYSLIPIDAEMIA
     Route: 048
     Dates: end: 20131126
  5. CITALOPRAM [Concomitant]
     Indication: DEPRESSION
     Route: 048
     Dates: end: 20131126
  6. DISTRANEURIN [Concomitant]
     Indication: SENILE DEMENTIA
     Route: 048
     Dates: start: 20131029, end: 20131126
  7. QUETIAPINE [Concomitant]
     Indication: CONFUSIONAL STATE
     Route: 048
     Dates: end: 20131126
  8. HALDOL [Concomitant]
     Indication: AGGRESSION
     Route: 058
     Dates: start: 20131029, end: 20131126
  9. PERINDOPRIL [Concomitant]
     Indication: HYPERTENSION
     Route: 048
     Dates: end: 20131126

REACTIONS (2)
  - Cerebral haemorrhage [Fatal]
  - Thrombocytopenia [Fatal]
